FAERS Safety Report 17967107 (Version 1)
Quarter: 2020Q3

REPORT INFORMATION
  Report Type: Spontaneous
  Country: PT (occurrence: PT)
  Receive Date: 20200701
  Receipt Date: 20200701
  Transmission Date: 20201103
  Serious: Yes (Hospitalization, Other)
  Sender: FDA-Public Use
  Company Number: PT-AUROBINDO-AUR-APL-2019-004455

PATIENT
  Age: 55 Year
  Sex: Female

DRUGS (9)
  1. ZOLPIDEM [Suspect]
     Active Substance: ZOLPIDEM TARTRATE
     Indication: ANXIOLYTIC THERAPY
     Dosage: 350 MILLIGRAM, DAILY
     Route: 065
     Dates: start: 2004
  2. FLUOXETINE [Suspect]
     Active Substance: FLUOXETINE HYDROCHLORIDE
     Indication: DETOXIFICATION
     Dosage: 40 MILLIGRAM, DAILY
     Route: 065
  3. RISPERIDONE. [Suspect]
     Active Substance: RISPERIDONE
     Indication: DETOXIFICATION
     Dosage: 4 MILLIGRAM, DAILY
     Route: 065
  4. ZOLPIDEM [Suspect]
     Active Substance: ZOLPIDEM TARTRATE
     Indication: INSOMNIA
     Dosage: 10 MILLIGRAM, DAILY
     Route: 065
     Dates: start: 2004
  5. TOPIRAMATE. [Suspect]
     Active Substance: TOPIRAMATE
     Indication: DETOXIFICATION
     Dosage: 100 MILLIGRAM, DAILY
     Route: 065
  6. LORAZEPAM. [Suspect]
     Active Substance: LORAZEPAM
     Indication: DETOXIFICATION
     Dosage: 5.5 MILLIGRAM, DAILY
     Route: 065
  7. QUETIAPINE. [Suspect]
     Active Substance: QUETIAPINE
     Indication: DETOXIFICATION
     Dosage: 400 MILLIGRAM, DAILY
     Route: 016
  8. QUETIAPINE. [Suspect]
     Active Substance: QUETIAPINE
     Dosage: 150 MILLIGRAM, DAILY
     Route: 065
  9. ZOLPIDEM [Suspect]
     Active Substance: ZOLPIDEM TARTRATE
     Indication: INITIAL INSOMNIA
     Dosage: 280 MILLIGRAM, DAILY
     Route: 065
     Dates: start: 2004

REACTIONS (6)
  - Drug dependence [Recovered/Resolved]
  - Off label use [Unknown]
  - Drug abuse [Recovered/Resolved]
  - Intentional overdose [Unknown]
  - Drug tolerance [Unknown]
  - Withdrawal syndrome [Recovered/Resolved]
